FAERS Safety Report 24419743 (Version 3)
Quarter: 2025Q2

REPORT INFORMATION
  Report Type: Spontaneous
  Country: PL (occurrence: PL)
  Receive Date: 20241010
  Receipt Date: 20250619
  Transmission Date: 20250716
  Serious: Yes (Hospitalization, Other)
  Sender: AUROBINDO
  Company Number: PL-EMA-20170302-faizanevprod-131333217

PATIENT
  Age: 46 Year
  Sex: Female

DRUGS (12)
  1. ACETAMINOPHEN [Suspect]
     Active Substance: ACETAMINOPHEN
     Indication: Viral infection
     Route: 048
  2. ACETAMINOPHEN [Suspect]
     Active Substance: ACETAMINOPHEN
     Indication: Influenza like illness
     Dosage: 5.5 GRAM, ONCE A DAY
     Route: 065
  3. VINORELBINE [Suspect]
     Active Substance: VINORELBINE TARTRATE
     Indication: Invasive ductal breast carcinoma
     Route: 065
     Dates: start: 201103
  4. VINORELBINE [Suspect]
     Active Substance: VINORELBINE TARTRATE
     Indication: Metastases to lymph nodes
  5. VINORELBINE [Suspect]
     Active Substance: VINORELBINE TARTRATE
     Indication: Breast cancer metastatic
  6. ACETAMINOPHEN\ASCORBIC ACID\PHENIRAMINE MALEATE [Suspect]
     Active Substance: ACETAMINOPHEN\ASCORBIC ACID\PHENIRAMINE MALEATE
     Indication: Viral infection
     Route: 065
  7. ACETAMINOPHEN\ASCORBIC ACID\PHENIRAMINE MALEATE [Suspect]
     Active Substance: ACETAMINOPHEN\ASCORBIC ACID\PHENIRAMINE MALEATE
     Indication: Influenza like illness
     Dosage: 5.5 GRAM, ONCE A DAY (ESTIMATED 5.5G DAILY DOSE)
     Route: 048
  8. CAPECITABINE [Suspect]
     Active Substance: CAPECITABINE
     Indication: Invasive ductal breast carcinoma
     Route: 065
     Dates: start: 201103
  9. CAPECITABINE [Suspect]
     Active Substance: CAPECITABINE
     Indication: Metastases to lymph nodes
     Route: 065
     Dates: start: 201103
  10. GARLIC [Concomitant]
     Active Substance: GARLIC
     Indication: Influenza like illness
     Route: 065
  11. TAMOXIFEN [Concomitant]
     Active Substance: TAMOXIFEN
     Indication: Invasive ductal breast carcinoma
     Route: 065
  12. GOSERELIN [Concomitant]
     Active Substance: GOSERELIN
     Indication: Invasive ductal breast carcinoma
     Route: 065

REACTIONS (22)
  - Hepatotoxicity [Recovered/Resolved]
  - Accidental overdose [Recovered/Resolved]
  - Self-medication [Unknown]
  - Drug-induced liver injury [Recovered/Resolved]
  - Overdose [Recovering/Resolving]
  - Gamma-glutamyltransferase increased [Recovered/Resolved]
  - Blood lactate dehydrogenase increased [Recovered/Resolved]
  - International normalised ratio increased [Recovered/Resolved]
  - Blood fibrinogen decreased [Recovered/Resolved]
  - Prothrombin time prolonged [Recovered/Resolved]
  - Vomiting [Recovered/Resolved]
  - Dyspepsia [Recovered/Resolved]
  - Alanine aminotransferase increased [Recovered/Resolved]
  - Aspartate aminotransferase increased [Recovered/Resolved]
  - Fibrin D dimer increased [Recovered/Resolved]
  - Asthenia [Recovered/Resolved]
  - Liver function test increased [Recovered/Resolved]
  - Pain [Recovered/Resolved]
  - Skin discolouration [Recovered/Resolved]
  - Thrombocytopenia [Recovered/Resolved]
  - Fatigue [Recovered/Resolved]
  - Hyperbilirubinaemia [Recovered/Resolved]

NARRATIVE: CASE EVENT DATE: 20110101
